FAERS Safety Report 13595443 (Version 1)
Quarter: 2017Q2

REPORT INFORMATION
  Report Type: Spontaneous
  Country: US (occurrence: US)
  Receive Date: 20170531
  Receipt Date: 20170531
  Transmission Date: 20170830
  Serious: No
  Sender: FDA-Public Use
  Company Number: US-BIOGEN-2017BI00407417

PATIENT
  Sex: Female

DRUGS (1)
  1. TECFIDERA [Suspect]
     Active Substance: DIMETHYL FUMARATE
     Indication: MULTIPLE SCLEROSIS
     Route: 065
     Dates: start: 20160822

REACTIONS (5)
  - Visual impairment [Unknown]
  - Inappropriate schedule of drug administration [Unknown]
  - Amnesia [Unknown]
  - Oral mucosal blistering [Unknown]
  - Memory impairment [Unknown]
